FAERS Safety Report 4732929-9 (Version None)
Quarter: 2005Q3

REPORT INFORMATION
  Report Type: 
  Country: None (occurrence: None)
  Receive Date: 20050803
  Receipt Date: 20050531
  Transmission Date: 20060218
  Serious: No
  Sender: FDA-Public Use
  Company Number: US-GLAXOSMITHKLINE-A0560562A

PATIENT
  Age: 84 Year
  Sex: Male

DRUGS (5)
  1. AVANDAMET [Suspect]
     Dosage: 2MG THREE TIMES PER DAY
     Route: 048
  2. DIOVAN [Concomitant]
  3. LIPITOR [Concomitant]
  4. ALLEGRA [Concomitant]
  5. GLUCOTROL [Concomitant]

REACTIONS (4)
  - DIZZINESS [None]
  - FATIGUE [None]
  - OEDEMA PERIPHERAL [None]
  - VISION BLURRED [None]
